FAERS Safety Report 6850743-5 (Version None)
Quarter: 2010Q3

REPORT INFORMATION
  Report Type: 
  Country: None (occurrence: None)
  Receive Date: 20100716
  Receipt Date: 20071021
  Transmission Date: 20110219
  Serious: Yes (Other)
  Sender: FDA-Public Use
  Company Number: US-PFIZER INC-2007089890

PATIENT
  Age: 35 Year
  Sex: Female
  Weight: 72.727 kg

DRUGS (14)
  1. CHANTIX [Suspect]
     Indication: SMOKING CESSATION THERAPY
     Route: 048
     Dates: start: 20071012
  2. LORTAB [Interacting]
     Indication: HERPES ZOSTER
     Dates: start: 20071001
  3. ALL OTHER THERAPEUTIC PRODUCTS [Interacting]
  4. NEORAL [Concomitant]
  5. IMURAN [Concomitant]
  6. PREDNISONE [Concomitant]
  7. HYDRALAZINE HCL [Concomitant]
  8. CLONIDINE [Concomitant]
  9. HYDROCHLOROTHIAZIDE [Concomitant]
  10. METHYLDOPA [Concomitant]
  11. FERROUS SULFATE [Concomitant]
  12. BACTRIM [Concomitant]
  13. VALIUM [Concomitant]
  14. ACYCLOVIR [Concomitant]

REACTIONS (2)
  - BLOOD PRESSURE INCREASED [None]
  - DRUG INTERACTION [None]
